FAERS Safety Report 9498997 (Version 2)
Quarter: 2013Q3

REPORT INFORMATION
  Report Type: Spontaneous
  Country: US (occurrence: US)
  Receive Date: 20130904
  Receipt Date: 20130924
  Transmission Date: 20140515
  Serious: Yes (Hospitalization)
  Sender: FDA-Public Use
  Company Number: US-B.I. PHARMACEUTICALS,INC./RIDGEFIELD-2013-BI-26944BP

PATIENT
  Age: 82 Year
  Sex: Male
  Weight: 73 kg

DRUGS (10)
  1. PRADAXA [Suspect]
     Indication: ATRIAL FIBRILLATION
     Dosage: 300 MCG
     Route: 048
     Dates: start: 201307, end: 20130827
  2. PRADAXA [Suspect]
     Indication: CEREBROVASCULAR ACCIDENT PROPHYLAXIS
  3. ASPIRIN [Concomitant]
     Indication: CORONARY ARTERY DISEASE
     Dosage: 81 MG
     Route: 048
  4. FERROUS SULFATE [Concomitant]
  5. AVAPRO [Concomitant]
     Indication: HYPERTENSION
     Dosage: 75 MG
     Route: 048
  6. LEVOTHYROXINE [Concomitant]
     Indication: HYPOTHYROIDISM
     Dosage: 50 MCG
     Route: 048
  7. MULTIVITAMIN [Concomitant]
     Dosage: 1 ANZ
     Route: 048
  8. OMEGA-3 FATTY ACIDS [Concomitant]
     Indication: HYPERLIPIDAEMIA
     Dosage: 1000 MG
     Route: 048
  9. SIMVASTATIN [Concomitant]
     Indication: HYPERLIPIDAEMIA
     Dosage: 20 MG
     Route: 048
  10. WARFARIN [Concomitant]
     Dates: start: 201007, end: 201307

REACTIONS (1)
  - Lower gastrointestinal haemorrhage [Recovered/Resolved]
